FAERS Safety Report 13290041 (Version 1)
Quarter: 2017Q1

REPORT INFORMATION
  Report Type: Report from Study
  Country: ES (occurrence: ES)
  Receive Date: 20170302
  Receipt Date: 20170302
  Transmission Date: 20170428
  Serious: Yes (Hospitalization, Other)
  Sender: FDA-Public Use
  Company Number: ES-PFIZER INC-2017084239

PATIENT
  Age: 47 Year
  Sex: Male

DRUGS (3)
  1. PIPERACILLIN/TAZOBACTAM [Suspect]
     Active Substance: PIPERACILLIN SODIUM\TAZOBACTAM SODIUM
     Indication: SOFT TISSUE INFECTION
     Dosage: 4.5 G, 3X/DAY
  2. GABAPENTIN. [Suspect]
     Active Substance: GABAPENTIN
     Indication: SOFT TISSUE INFECTION
     Dosage: UNK
  3. METHIMAZOLE. [Suspect]
     Active Substance: METHIMAZOLE
     Indication: SOFT TISSUE INFECTION
     Dosage: UNK

REACTIONS (1)
  - Agranulocytosis [Recovered/Resolved]
